FAERS Safety Report 6478404-5 (Version None)
Quarter: 2009Q4

REPORT INFORMATION
  Report Type: 
  Country: None (occurrence: None)
  Receive Date: 20091207
  Receipt Date: 20091127
  Transmission Date: 20100525
  Serious: Yes (Hospitalization)
  Sender: FDA-Public Use
  Company Number: PHHO2009BE14996

PATIENT
  Sex: Male

DRUGS (1)
  1. AFINITOR [Suspect]
     Indication: METASTATIC RENAL CELL CARCINOMA
     Dosage: 10 MG
     Route: 048
     Dates: start: 20081106, end: 20091118

REACTIONS (3)
  - HYPERCALCAEMIA [None]
  - HYPERKALAEMIA [None]
  - RENAL FAILURE [None]
